FAERS Safety Report 20853958 (Version 1)
Quarter: 2022Q2

REPORT INFORMATION
  Report Type: Spontaneous
  Country: US (occurrence: None)
  Receive Date: 20220519
  Receipt Date: 20220519
  Transmission Date: 20220721
  Serious: No
  Sender: FDA-Public Use
  Company Number: None

PATIENT

DRUGS (2)
  1. NORTRIPTYLINE HYDROCHLORIDE [Suspect]
     Active Substance: NORTRIPTYLINE HYDROCHLORIDE
     Route: 048
  2. ONDANSETRON [Suspect]
     Active Substance: ONDANSETRON
     Route: 048

REACTIONS (4)
  - Product commingling [None]
  - Wrong product administered [None]
  - Drug monitoring procedure not performed [None]
  - Drug dispensed to wrong patient [None]
